FAERS Safety Report 6414893-X (Version None)
Quarter: 2009Q4

REPORT INFORMATION
  Report Type: 
  Country: None (occurrence: None)
  Receive Date: 20091026
  Receipt Date: 20090624
  Transmission Date: 20100525
  Serious: No
  Sender: FDA-Public Use
  Company Number: US-ABBOTT-09P-163-0581082-00

PATIENT
  Sex: Female
  Weight: 86.714 kg

DRUGS (6)
  1. LUPRON DEPOT [Suspect]
     Indication: ENDOMETRIOSIS
     Route: 050
     Dates: start: 20070801, end: 20080201
  2. DARVOCET-N 100 [Concomitant]
     Indication: HEADACHE
     Dosage: 2 IN 1 DAY AS NEEDED
     Route: 048
  3. DEPO-PROVERA [Concomitant]
     Indication: CONTRACEPTION
     Route: 050
  4. LAMICTAL [Concomitant]
     Indication: DEPRESSION
     Dosage: 5 IN 1 DAY WITH ABILIFY
     Route: 048
  5. ABILIFY [Concomitant]
     Indication: DEPRESSION
     Dosage: 1 DAILY WITH LAMICTAL
     Route: 048
  6. TOPAMAX [Concomitant]
     Indication: HEADACHE
     Route: 048

REACTIONS (2)
  - ABDOMINAL PAIN [None]
  - PELVIC PAIN [None]
